FAERS Safety Report 25114586 (Version 1)
Quarter: 2025Q1

REPORT INFORMATION
  Report Type: Spontaneous
  Country: US (occurrence: None)
  Receive Date: 20250321
  Receipt Date: 20250321
  Transmission Date: 20250409
  Serious: No
  Sender: FDA-CTU
  Company Number: None

PATIENT
  Sex: Female

DRUGS (3)
  1. SIMPONI [Suspect]
     Active Substance: GOLIMUMAB
     Indication: Cerebrovascular accident
     Dosage: OTHER STRENGTH : 50MG/0.5M;?FREQUENCY : MONTHLY;?
     Route: 058
     Dates: start: 202201
  2. SIMPONI [Concomitant]
     Active Substance: GOLIMUMAB
  3. MIRENA IUD SYS [Concomitant]

REACTIONS (1)
  - Cerebrovascular accident [None]
